FAERS Safety Report 7474572-7 (Version None)
Quarter: 2011Q2

REPORT INFORMATION
  Report Type: 
  Country: None (occurrence: None)
  Receive Date: 20110503
  Receipt Date: 20110419
  Transmission Date: 20111010
  Serious: Yes (Other)
  Sender: FDA-Public Use
  Company Number: 2011AP000775

PATIENT
  Age: 67 Year
  Sex: Female

DRUGS (4)
  1. DICLOFENAC (DICLOFENAC) [Concomitant]
  2. POTASSIUM CHLORIDE [Concomitant]
  3. CITALOPRAM HYDROBROMIDE [Suspect]
     Indication: DEPRESSION
     Dosage: 20 MG;QD
     Dates: start: 20110307, end: 20110314
  4. BISCODYL (BISCODYL) [Concomitant]

REACTIONS (4)
  - SUICIDAL IDEATION [None]
  - DEPRESSED MOOD [None]
  - OEDEMA PERIPHERAL [None]
  - NIGHTMARE [None]
